FAERS Safety Report 8946974 (Version 1)
Quarter: 2012Q4

REPORT INFORMATION
  Report Type: 
  Country: US (occurrence: US)
  Receive Date: 20121205
  Receipt Date: 20121205
  Transmission Date: 20130627
  Serious: Yes (Other)
  Sender: FDA-Public Use
  Company Number: US-PFIZER INC-2012304444

PATIENT
  Age: 79 Year
  Sex: Male
  Weight: 78.01 kg

DRUGS (6)
  1. LIPITOR [Suspect]
     Indication: HIGH CHOLESTEROL
     Dosage: 10 mg, every alternate day
     Route: 048
  2. GLIMEPIRIDE [Concomitant]
     Dosage: UNK
  3. JANUVIA [Concomitant]
     Dosage: UNK
  4. PLAVIX [Concomitant]
     Dosage: UNK
  5. ASPIRIN [Concomitant]
     Dosage: UNK, 3x/day
  6. DIOVANE [Concomitant]
     Dosage: UNK

REACTIONS (3)
  - Coronary artery occlusion [Unknown]
  - Spinal column stenosis [Unknown]
  - Back pain [Unknown]
